FAERS Safety Report 5573254-6 (Version None)
Quarter: 2007Q4

REPORT INFORMATION
  Report Type: 
  Country: None (occurrence: None)
  Receive Date: 20071220
  Receipt Date: 20071214
  Transmission Date: 20080405
  Serious: Yes (Hospitalization)
  Sender: FDA-Public Use
  Company Number: 2007337756

PATIENT
  Age: 78 Year
  Sex: Male

DRUGS (2)
  1. ROGAINE 5 [Suspect]
     Indication: ALOPECIA
     Dosage: HALF CAPFUL, TWICE A DAY (2 IN 1 D), TOPICAL
     Route: 061
     Dates: start: 20071127, end: 20071209
  2. REFLEX, UNSPECIFIED (REFLUX, UNSPECIFIED) [Concomitant]

REACTIONS (1)
  - PULMONARY EMBOLISM [None]
